FAERS Safety Report 6160431-9 (Version None)
Quarter: 2009Q2

REPORT INFORMATION
  Report Type: 
  Country: None (occurrence: None)
  Receive Date: 20090420
  Receipt Date: 20090415
  Transmission Date: 20091009
  Serious: Yes (Hospitalization, Other)
  Sender: FDA-Public Use
  Company Number: IN-ROXANE LABORATORIES, INC.-2009-RO-00383RO

PATIENT
  Age: 35 Year
  Sex: Female
  Weight: 50 kg

DRUGS (23)
  1. MORPHINE [Suspect]
     Indication: PAIN
     Dosage: 20MG
     Route: 048
  2. MORPHINE [Suspect]
     Route: 008
  3. MORPHINE [Suspect]
     Dosage: 1MG
     Route: 037
  4. ONDANSETRON [Suspect]
     Indication: VOMITING
     Dosage: 8MG
  5. ONDANSETRON [Suspect]
  6. LIDOCAINE [Suspect]
     Indication: LOCAL ANAESTHESIA
  7. ACECLOFENAC [Suspect]
     Dosage: 200MG
     Route: 048
  8. AMITRIPTLINE HYDROCHLORIDE TAB [Suspect]
     Dosage: 25MG
  9. METOCLOPRAMIDE [Suspect]
     Indication: CONSTIPATION
     Dosage: 30MG
  10. METOCLOPRAMIDE [Suspect]
     Dosage: 30MG
     Route: 042
  11. DULCOLAX [Suspect]
     Indication: CONSTIPATION
  12. GABAPENTIN [Suspect]
     Dosage: 600MG
  13. IBUPROFEN [Suspect]
     Dosage: 1200MG
  14. CREMAFFIN [Suspect]
  15. OXYGEN [Suspect]
     Indication: MAINTENANCE OF ANAESTHESIA
  16. OXYGEN [Suspect]
  17. PROPOFOL [Suspect]
     Indication: INDUCTION OF ANAESTHESIA
     Route: 042
  18. VECURONIUM BROMIDE [Suspect]
     Indication: HYPOTONIA
     Route: 042
  19. N2O [Suspect]
     Indication: MAINTENANCE OF ANAESTHESIA
  20. ISOFLURANE [Suspect]
     Indication: MAINTENANCE OF ANAESTHESIA
  21. NEOSTIGMINE [Suspect]
     Indication: ANAESTHESIA REVERSAL
     Route: 042
  22. GLYCOPYRROLATE [Suspect]
     Indication: ANAESTHESIA REVERSAL
     Route: 042
  23. METHYLENE BLUE [Concomitant]

REACTIONS (4)
  - CONSTIPATION [None]
  - DRUG INEFFECTIVE [None]
  - INTRACRANIAL HYPOTENSION [None]
  - VOMITING [None]
